FAERS Safety Report 19901125 (Version 1)
Quarter: 2021Q3

REPORT INFORMATION
  Report Type: Spontaneous
  Country: JP (occurrence: JP)
  Receive Date: 20210930
  Receipt Date: 20210930
  Transmission Date: 20211014
  Serious: Yes (Death, Other)
  Sender: FDA-Public Use
  Company Number: JP-ELI_LILLY_AND_COMPANY-JP202109011258

PATIENT
  Age: 62 Year
  Sex: Female
  Weight: 62.4 kg

DRUGS (3)
  1. DOBUTAMINE [Concomitant]
     Active Substance: DOBUTAMINE HYDROCHLORIDE
     Indication: PRODUCT USED FOR UNKNOWN INDICATION
  2. ADCIRCA [Suspect]
     Active Substance: TADALAFIL
     Indication: PULMONARY ARTERIAL HYPERTENSION
     Dosage: 5 MG, DAILY
     Route: 048
  3. MILRINONE [Concomitant]
     Active Substance: MILRINONE
     Indication: PRODUCT USED FOR UNKNOWN INDICATION

REACTIONS (8)
  - Anuria [Unknown]
  - Lung opacity [Unknown]
  - Hypoxia [Unknown]
  - Blood pressure decreased [Unknown]
  - Pulmonary embolism [Unknown]
  - Lymphadenopathy mediastinal [Unknown]
  - Death [Fatal]
  - Pleural effusion [Unknown]
